FAERS Safety Report 23041408 (Version 1)
Quarter: 2023Q4

REPORT INFORMATION
  Report Type: Report from Study
  Country: BR (occurrence: BR)
  Receive Date: 20231007
  Receipt Date: 20231007
  Transmission Date: 20240110
  Serious: Yes (Other)
  Sender: FDA-Public Use
  Company Number: BR-CELLTRION INC.-2023BR019217

PATIENT

DRUGS (10)
  1. INFLIXIMAB [Suspect]
     Active Substance: INFLIXIMAB
     Indication: Crohn^s disease
     Dosage: 5 AMPOULES EVERY 60 DAYS
     Route: 042
     Dates: start: 20220812
  2. INFLIXIMAB [Suspect]
     Active Substance: INFLIXIMAB
     Dosage: UNK
     Route: 042
     Dates: start: 20230928
  3. ENALAPRIL [Concomitant]
     Active Substance: ENALAPRIL
     Indication: Hypertension
     Dosage: 2 PILLS A DAY (START DATE: 36 YEARS)
     Route: 048
  4. SPIRONOLACTONE [Concomitant]
     Active Substance: SPIRONOLACTONE
     Indication: Hypertension
     Dosage: 1 PILL A DAY, (START DATE: 36 YEARS)
     Route: 048
  5. LEVOTHYROXINE [Concomitant]
     Active Substance: LEVOTHYROXINE
     Indication: Hypothyroidism
     Dosage: 1 PILL A DAY, SINCE 1995
     Route: 048
     Dates: start: 1995
  6. CIPROFIBRATE [Concomitant]
     Active Substance: CIPROFIBRATE
     Dosage: 1 PILL A DAY (START DATE: 3 YEARS)
     Route: 048
  7. ATORVASTATIN [Concomitant]
     Active Substance: ATORVASTATIN
     Indication: Blood cholesterol
     Dosage: 1 PILL A DAY (START DATE: 3 YEARS)
     Route: 048
  8. AMIODARONE [Concomitant]
     Active Substance: AMIODARONE
     Indication: Arrhythmia
     Dosage: 1 PILL A DAY (START DATE: 3 YEARS)
     Route: 048
  9. METFORMIN [Concomitant]
     Active Substance: METFORMIN HYDROCHLORIDE
     Indication: Diabetes mellitus management
     Dosage: 1 PILL A DAY (START DATE: 3 YEARS)
     Route: 048
  10. OMEPRAZOLE [Concomitant]
     Active Substance: OMEPRAZOLE
     Dosage: 1 PILL A DAY (START DATE: 3 YEARS)
     Route: 048

REACTIONS (1)
  - Crohn^s disease [Recovering/Resolving]
